FAERS Safety Report 7630439-2 (Version None)
Quarter: 2011Q3

REPORT INFORMATION
  Report Type: 
  Country: None (occurrence: None)
  Receive Date: 20110722
  Receipt Date: 20110714
  Transmission Date: 20111222
  Serious: Yes (Hospitalization)
  Sender: FDA-Public Use
  Company Number: IT-GLAXOSMITHKLINE-B0734407A

PATIENT
  Sex: Female

DRUGS (1)
  1. LANOXIN [Suspect]
     Indication: CARDIAC FAILURE
     Dosage: 1TAB PER DAY
     Route: 048
     Dates: start: 20101001, end: 20110105

REACTIONS (2)
  - RENAL FAILURE ACUTE [None]
  - CARDIOACTIVE DRUG LEVEL INCREASED [None]
